FAERS Safety Report 5849343-5 (Version None)
Quarter: 2008Q3

REPORT INFORMATION
  Report Type: 
  Country: None (occurrence: None)
  Receive Date: 20080731
  Receipt Date: 20080530
  Transmission Date: 20090109
  Serious: No
  Sender: FDA-Public Use
  Company Number: US200806000324

PATIENT
  Age: 66 Year
  Sex: Male
  Weight: 127 kg

DRUGS (6)
  1. BYETTA [Suspect]
     Indication: TYPE 2 DIABETES MELLITUS
     Dosage: 10 UG, 2/D, SUBCUTANEOUS
     Route: 058
     Dates: start: 20070101
  2. LANTUS [Concomitant]
  3. GLUCOVANCE [Concomitant]
  4. PRANDIN /USA/ (REPAGLINIDE) [Concomitant]
  5. TIKOSYN [Concomitant]
  6. BETA BLOCKING AGENTS [Concomitant]

REACTIONS (2)
  - INCORRECT DOSE ADMINISTERED [None]
  - INJECTION SITE HAEMORRHAGE [None]
